FAERS Safety Report 12886996 (Version 1)
Quarter: 2016Q4

REPORT INFORMATION
  Report Type: Spontaneous
  Country: US (occurrence: US)
  Receive Date: 20161026
  Receipt Date: 20161026
  Transmission Date: 20170207
  Serious: No
  Sender: FDA-Public Use
  Company Number: US-PERRIGO-15US010145

PATIENT
  Age: 27 Year
  Sex: Male
  Weight: 72.56 kg

DRUGS (1)
  1. NICOTINE POLACRILEX [Suspect]
     Active Substance: NICOTINE
     Indication: TOBACCO USER
     Dosage: 4 MG, EVERY 1 TO 1.5 HOURS
     Route: 002
     Dates: start: 201509, end: 201509

REACTIONS (3)
  - Off label use [Recovered/Resolved]
  - Breath odour [Recovered/Resolved]
  - Dysgeusia [Recovered/Resolved]

NARRATIVE: CASE EVENT DATE: 201509
